FAERS Safety Report 20113851 (Version 1)
Quarter: 2021Q4

REPORT INFORMATION
  Report Type: Report from Study
  Country: US (occurrence: US)
  Receive Date: 20211125
  Receipt Date: 20211125
  Transmission Date: 20220303
  Serious: No
  Sender: FDA-Public Use
  Company Number: US-Ipsen Biopharmaceuticals, Inc.-2021-29527

PATIENT
  Age: 10 Year
  Sex: Male

DRUGS (2)
  1. INCRELEX [Suspect]
     Active Substance: MECASERMIN
     Indication: Short stature
     Route: 058
     Dates: start: 20211120
  2. INCRELEX [Suspect]
     Active Substance: MECASERMIN
     Indication: Off label use

REACTIONS (5)
  - Agitation [Not Recovered/Not Resolved]
  - Tremor [Not Recovered/Not Resolved]
  - Crying [Not Recovered/Not Resolved]
  - Nightmare [Not Recovered/Not Resolved]
  - Off label use [Unknown]

NARRATIVE: CASE EVENT DATE: 20211120
